FAERS Safety Report 6405912-5 (Version None)
Quarter: 2009Q4

REPORT INFORMATION
  Report Type: 
  Country: None (occurrence: None)
  Receive Date: 20091016
  Receipt Date: 20091016
  Transmission Date: 20100525
  Serious: Yes (Hospitalization, Other)
  Sender: FDA-Public Use
  Company Number: None

PATIENT
  Sex: Male

DRUGS (2)
  1. SIROLIMUS [Suspect]
     Indication: HEART TRANSPLANT
  2. CYCLOSPORINE [Concomitant]

REACTIONS (1)
  - APLASIA PURE RED CELL [None]
